FAERS Safety Report 8007103-3 (Version None)
Quarter: 2011Q4

REPORT INFORMATION
  Report Type: 
  Country: None (occurrence: None)
  Receive Date: 20111227
  Receipt Date: 20111220
  Transmission Date: 20120403
  Serious: Yes (Hospitalization)
  Sender: FDA-Public Use
  Company Number: DE-PFIZER INC-2011308474

PATIENT
  Age: 45 Year
  Sex: Male

DRUGS (1)
  1. VENLAFAXINE HCL [Suspect]
     Dosage: 150 MG PER DAY
     Dates: start: 20100801

REACTIONS (2)
  - DRUG EFFECT DECREASED [None]
  - CYSTITIS [None]
